FAERS Safety Report 19711280 (Version 2)
Quarter: 2021Q4

REPORT INFORMATION
  Report Type: Spontaneous
  Country: DE (occurrence: DE)
  Receive Date: 20210816
  Receipt Date: 20211006
  Transmission Date: 20220303
  Serious: Yes (Other)
  Sender: FDA-Public Use
  Company Number: NVSC2021DE179393

PATIENT
  Sex: Male

DRUGS (2)
  1. CLINDAMYCIN HYDROCHLORIDE [Suspect]
     Active Substance: CLINDAMYCIN HYDROCHLORIDE
     Indication: Product used for unknown indication
     Dosage: UNK
     Route: 065
     Dates: start: 20210802
  2. CLINDAMYCIN HYDROCHLORIDE [Suspect]
     Active Substance: CLINDAMYCIN HYDROCHLORIDE
     Dosage: UNK
     Route: 065

REACTIONS (1)
  - Diarrhoea haemorrhagic [Unknown]

NARRATIVE: CASE EVENT DATE: 20210802
